FAERS Safety Report 5353584-3 (Version None)
Quarter: 2007Q2

REPORT INFORMATION
  Report Type: 
  Country: None (occurrence: None)
  Receive Date: 20070612
  Receipt Date: 20070607
  Transmission Date: 20071010
  Serious: Yes (Hospitalization)
  Sender: FDA-Public Use
  Company Number: CN-BRISTOL-MYERS SQUIBB COMPANY-13804604

PATIENT
  Age: 35 Year
  Sex: Male
  Weight: 50 kg

DRUGS (3)
  1. CYCLOPHOSPHAMIDE [Suspect]
     Indication: LUPUS NEPHRITIS
     Route: 042
     Dates: start: 20060425, end: 20060425
  2. PREDNISONE TAB [Suspect]
     Route: 048
     Dates: start: 20060425, end: 20060523
  3. VITAMIN E [Concomitant]

REACTIONS (1)
  - GINGIVITIS [None]
